FAERS Safety Report 5627720-5 (Version None)
Quarter: 2008Q1

REPORT INFORMATION
  Report Type: 
  Country: None (occurrence: None)
  Receive Date: 20080215
  Receipt Date: 20080212
  Transmission Date: 20080703
  Serious: Yes (Disabling)
  Sender: FDA-Public Use
  Company Number: BR-ASTRAZENECA-2007UW26257

PATIENT
  Age: 38 Year
  Sex: Female
  Weight: 52 kg

DRUGS (1)
  1. ZOLADEX [Suspect]
     Indication: ENDOMETRIOSIS
     Route: 058
     Dates: start: 20060901, end: 20070401

REACTIONS (4)
  - BACK PAIN [None]
  - DYSPNOEA [None]
  - ENDOMETRIOSIS [None]
  - PAIN IN EXTREMITY [None]
